FAERS Safety Report 5928353-3 (Version None)
Quarter: 2008Q4

REPORT INFORMATION
  Report Type: 
  Country: None (occurrence: None)
  Receive Date: 20081023
  Receipt Date: 20081016
  Transmission Date: 20090506
  Serious: Yes (Other)
  Sender: FDA-Public Use
  Company Number: GB-GILEAD-2008-0018107

PATIENT
  Sex: Male
  Weight: 70 kg

DRUGS (5)
  1. ATRIPLA [Suspect]
     Indication: HIV INFECTION
     Route: 048
     Dates: start: 20080828, end: 20080909
  2. FLUTICONASONE [Concomitant]
     Indication: ASTHMA
     Route: 055
  3. NASONEX [Concomitant]
     Indication: RHINITIS
     Route: 045
  4. CETIRIZINE HCL [Concomitant]
     Route: 048
     Dates: start: 20080903, end: 20080912
  5. ACYCLOVIR [Concomitant]
     Indication: HERPES SIMPLEX
     Route: 048
     Dates: start: 20080601, end: 20080601

REACTIONS (4)
  - MUCOSAL ULCERATION [None]
  - PRURITUS [None]
  - RASH [None]
  - THROMBOCYTOPENIA [None]
